FAERS Safety Report 18492181 (Version 5)
Quarter: 2024Q2

REPORT INFORMATION
  Report Type: Spontaneous
  Country: US (occurrence: US)
  Receive Date: 20201111
  Receipt Date: 20240617
  Transmission Date: 20240716
  Serious: Yes (Other)
  Sender: FDA-Public Use
  Company Number: US-PFIZER INC-2020443999

PATIENT
  Age: 63 Year
  Sex: Female

DRUGS (2)
  1. XELJANZ [Suspect]
     Active Substance: TOFACITINIB CITRATE
     Indication: Rheumatoid arthritis
     Dosage: 10 MG, 2X/DAY
     Route: 048
     Dates: start: 202009
  2. XELJANZ [Suspect]
     Active Substance: TOFACITINIB CITRATE
     Dosage: 5 MG, 2X/DAY
     Route: 048
     Dates: start: 202009

REACTIONS (14)
  - Neuralgia [Unknown]
  - Fatigue [Unknown]
  - Cystitis [Unknown]
  - Arthralgia [Unknown]
  - Joint stiffness [Unknown]
  - Back pain [Unknown]
  - Sensitivity to weather change [Unknown]
  - Osteoarthritis [Unknown]
  - Fibromyalgia [Unknown]
  - Eating disorder [Unknown]
  - Speech disorder [Unknown]
  - Malaise [Unknown]
  - Anxiety [Unknown]
  - Product dose omission issue [Unknown]

NARRATIVE: CASE EVENT DATE: 20200101
